FAERS Safety Report 19443924 (Version 2)
Quarter: 2021Q3

REPORT INFORMATION
  Report Type: Spontaneous
  Country: IT (occurrence: IT)
  Receive Date: 20210621
  Receipt Date: 20210805
  Transmission Date: 20211014
  Serious: Yes (Hospitalization)
  Sender: FDA-Public Use
  Company Number: IT-ELI_LILLY_AND_COMPANY-IT202106004995

PATIENT
  Age: 76 Year
  Sex: Female

DRUGS (5)
  1. TACHIDOL [Suspect]
     Active Substance: ACETAMINOPHEN\CODEINE PHOSPHATE
     Indication: DRUG ABUSE
     Dosage: 1 DOSAGE FORM, SINGLE (500 MG / 30 MG)
     Route: 048
     Dates: start: 20210420, end: 20210420
  2. SIMVASTATIN. [Concomitant]
     Active Substance: SIMVASTATIN
     Indication: HYPERCHOLESTEROLAEMIA
     Dosage: 1 DOSAGE FORM, UNKNOWN
     Route: 048
  3. CYMBALTA [Suspect]
     Active Substance: DULOXETINE HYDROCHLORIDE
     Indication: DRUG ABUSE
     Dosage: 2 DOSAGE FORM, SINGLE
     Route: 048
     Dates: start: 20210420, end: 20210420
  4. HALCION [Suspect]
     Active Substance: TRIAZOLAM
     Indication: DRUG ABUSE
     Dosage: 20 DOSAGE FORM, SINGLE
     Route: 048
     Dates: start: 20210420, end: 20210420
  5. COMPENDIUM [Suspect]
     Active Substance: BROMAZEPAM
     Indication: DRUG ABUSE
     Dosage: 40 ML, SINGLE (2.5 MG/ML)
     Route: 048
     Dates: start: 20210420, end: 20210420

REACTIONS (2)
  - Drug abuse [Recovering/Resolving]
  - Sopor [Recovering/Resolving]

NARRATIVE: CASE EVENT DATE: 20210420
